FAERS Safety Report 12502461 (Version 2)
Quarter: 2016Q4

REPORT INFORMATION
  Report Type: Spontaneous
  Country: US (occurrence: US)
  Receive Date: 20160627
  Receipt Date: 20161024
  Transmission Date: 20170207
  Serious: No
  Sender: FDA-Public Use
  Company Number: US-TEIKOKU PHARMA USA-TPU2016-00409

PATIENT
  Sex: Male
  Weight: 104.42 kg

DRUGS (6)
  1. AMITRIPTYLINE [Concomitant]
     Active Substance: AMITRIPTYLINE
     Indication: SLEEP DISORDER
     Route: 048
  2. LIDODERM [Suspect]
     Active Substance: LIDOCAINE
     Indication: ARTHRALGIA
     Dosage: ONE 5% PATCH TOPICALLY TO EACH HIP AND SMALL OF HIS BACK FOR 12 HOURS ON AND 12 HOURS OFF
     Route: 061
     Dates: start: 2014
  3. LIDOCAINE PATCH [Suspect]
     Active Substance: LIDOCAINE
     Indication: ARTHRALGIA
     Dosage: ONE 5% PATCH TOPICALLY TO EACH HIP AND SMALL OF HIS BACK FOR 12 HOURS ON AND 12 HOURS OFF
     Route: 061
  4. LYRICA [Concomitant]
     Active Substance: PREGABALIN
     Indication: PAIN
     Route: 048
  5. LIDODERM [Suspect]
     Active Substance: LIDOCAINE
     Indication: BACK PAIN
  6. OXYCODONE AND ACETAMINOPHEN [Concomitant]
     Active Substance: ACETAMINOPHEN\OXYCODONE HYDROCHLORIDE
     Indication: PAIN
     Dosage: TWO 10/325MG TABLETS BY MOUTH TWICE A DAY
     Route: 048

REACTIONS (2)
  - Drug ineffective for unapproved indication [Unknown]
  - General physical health deterioration [None]
